FAERS Safety Report 18300494 (Version 1)
Quarter: 2020Q3

REPORT INFORMATION
  Report Type: Spontaneous
  Country: US (occurrence: US)
  Receive Date: 20200923
  Receipt Date: 20200923
  Transmission Date: 20201103
  Serious: Yes (Other)
  Sender: FDA-Public Use
  Company Number: US-ELI_LILLY_AND_COMPANY-US202009005552

PATIENT
  Sex: Male

DRUGS (3)
  1. HUMULIN R U?500 [Suspect]
     Active Substance: INSULIN HUMAN
     Dosage: 50 U, TID (50 UNITS AM, LUNCH AND PM)
     Route: 058
  2. HUMULIN R U?500 [Suspect]
     Active Substance: INSULIN HUMAN
     Indication: TYPE 2 DIABETES MELLITUS
     Dosage: 50 U, TID (50 UNITS AM, LUNCH AND PM)
     Route: 058
  3. HUMULIN R U?500 [Suspect]
     Active Substance: INSULIN HUMAN
     Dosage: 50 U, TID (50 UNITS AM, LUNCH AND PM)
     Route: 058

REACTIONS (5)
  - Spinal fracture [Recovered/Resolved]
  - Sternal fracture [Recovered/Resolved]
  - Blood glucose increased [Recovered/Resolved]
  - Accidental underdose [Recovered/Resolved]
  - Rib fracture [Recovered/Resolved]
